FAERS Safety Report 26165261 (Version 1)
Quarter: 2025Q4

REPORT INFORMATION
  Report Type: Spontaneous
  Country: EU (occurrence: EU)
  Receive Date: 20251216
  Receipt Date: 20251216
  Transmission Date: 20260118
  Serious: Yes (Death)
  Sender: PFIZER
  Company Number: None

PATIENT
  Age: 79 Year
  Sex: Male

DRUGS (2)
  1. RITUXIMAB [Suspect]
     Active Substance: RITUXIMAB
     Indication: Nodal marginal zone B-cell lymphoma
     Dosage: 375 MG/M2, CYCLIC, DAY1 AND DAY28
     Route: 042
     Dates: start: 202409, end: 202503
  2. BENDAMUSTINE HYDROCHLORIDE [Suspect]
     Active Substance: BENDAMUSTINE HYDROCHLORIDE
     Indication: Nodal marginal zone B-cell lymphoma
     Dosage: 90 MG/M2, CYCLIC, DAY 1-DAY 2/DAY 28
     Route: 042
     Dates: start: 202409, end: 202503

REACTIONS (1)
  - Progressive multifocal leukoencephalopathy [Fatal]

NARRATIVE: CASE EVENT DATE: 20250901
